FAERS Safety Report 5197779-0 (Version None)
Quarter: 2006Q4

REPORT INFORMATION
  Report Type: 
  Country: None (occurrence: None)
  Receive Date: 20061228
  Receipt Date: 20061211
  Transmission Date: 20070319
  Serious: No
  Sender: FDA-Public Use
  Company Number: PHRM2006FR03099

PATIENT
  Age: 36 Year
  Sex: Male
  Weight: 70.0354 kg

DRUGS (1)
  1. VISUDYNE [Suspect]
     Indication: MYOPIA
     Dates: start: 20050526, end: 20050526

REACTIONS (2)
  - PHOTOPHOBIA [None]
  - SINUSITIS [None]
